FAERS Safety Report 10731070 (Version 2)
Quarter: 2015Q1

REPORT INFORMATION
  Report Type: Report from Study
  Country: US (occurrence: US)
  Receive Date: 20150122
  Receipt Date: 20150319
  Transmission Date: 20150721
  Serious: Yes (Hospitalization)
  Sender: FDA-Public Use
  Company Number: US-ACTELION-A-US2015-111236

PATIENT
  Age: 76 Year
  Sex: Male

DRUGS (2)
  1. ASPIRIN. [Concomitant]
     Active Substance: ASPIRIN
  2. MACITENTAN [Suspect]
     Active Substance: MACITENTAN
     Indication: PULMONARY ARTERIAL HYPERTENSION
     Dosage: `10 MG, QD
     Route: 048
     Dates: start: 20141106, end: 20150205

REACTIONS (3)
  - Fluid retention [Recovering/Resolving]
  - Chronic obstructive pulmonary disease [Unknown]
  - Dyspnoea [Unknown]

NARRATIVE: CASE EVENT DATE: 201412
